FAERS Safety Report 22273910 (Version 3)
Quarter: 2023Q4

REPORT INFORMATION
  Report Type: Spontaneous
  Country: JP (occurrence: JP)
  Receive Date: 20230502
  Receipt Date: 20231215
  Transmission Date: 20240109
  Serious: Yes (Other)
  Sender: FDA-Public Use
  Company Number: JP-TAKEDA-2023TJP005311

PATIENT
  Age: 8 Decade

DRUGS (1)
  1. CABOMETYX [Suspect]
     Active Substance: CABOZANTINIB S-MALATE
     Indication: Hepatocellular carcinoma
     Dosage: 60 MG, QD
     Route: 048
     Dates: start: 20230307, end: 202304

REACTIONS (4)
  - Ascites [Recovering/Resolving]
  - Hepatocellular carcinoma [Unknown]
  - Proteinuria [Recovering/Resolving]
  - Coronavirus infection [Unknown]

NARRATIVE: CASE EVENT DATE: 20230418
